FAERS Safety Report 10078920 (Version 1)
Quarter: 2014Q2

REPORT INFORMATION
  Report Type: Spontaneous
  Country: US (occurrence: None)
  Receive Date: 20140414
  Receipt Date: 20140414
  Transmission Date: 20141212
  Serious: Yes (Life-Threatening)
  Sender: FDA-Public Use
  Company Number: None

PATIENT
  Age: 51 Year
  Sex: Female
  Weight: 59 kg

DRUGS (8)
  1. OCTREOTIDE [Suspect]
     Indication: GASTROINTESTINAL HAEMORRHAGE
     Dosage: CONTINUOUS
     Route: 042
  2. OCTREOTIDE [Suspect]
     Indication: THROMBOCYTOPENIA
     Dosage: CONTINUOUS
     Route: 042
  3. OCTREOTIDE [Suspect]
     Indication: VARICOSE VEIN
     Dosage: CONTINUOUS
     Route: 042
  4. PANTOPRAZOLE 80 MG/500 ML [Concomitant]
  5. VITAMIN D [Concomitant]
  6. CEFTRIAXONE 1GM [Concomitant]
  7. IV RALLY PACK [Concomitant]
  8. VITAMIN K 5 MG [Concomitant]

REACTIONS (5)
  - Electrocardiogram QT prolonged [None]
  - Torsade de pointes [None]
  - Cardiomyopathy [None]
  - Ejection fraction decreased [None]
  - Ventricular tachycardia [None]
